FAERS Safety Report 6192748-6 (Version None)
Quarter: 2009Q2

REPORT INFORMATION
  Report Type: 
  Country: None (occurrence: None)
  Receive Date: 20090518
  Receipt Date: 20070605
  Transmission Date: 20091009
  Serious: Yes (Hospitalization, Other)
  Sender: FDA-Public Use
  Company Number: US-ASTRAZENECA-2006UW23508

PATIENT
  Age: 17939 Day
  Sex: Female
  Weight: 70.3 kg

DRUGS (31)
  1. SEROQUEL [Suspect]
     Indication: INSOMNIA
     Dosage: 25-100 MG
     Route: 048
     Dates: start: 20040331
  2. SEROQUEL [Suspect]
     Indication: SCHIZOPHRENIA
     Dosage: 25-100 MG
     Route: 048
     Dates: start: 20040331
  3. SEROQUEL [Suspect]
     Indication: BIPOLAR I DISORDER
     Dosage: 25-100 MG
     Route: 048
     Dates: start: 20040331
  4. SEROQUEL [Suspect]
     Route: 048
     Dates: start: 20050101
  5. SEROQUEL [Suspect]
     Route: 048
     Dates: start: 20050101
  6. SEROQUEL [Suspect]
     Route: 048
     Dates: start: 20050101
  7. ABILIFY [Concomitant]
     Route: 065
  8. GEODON [Concomitant]
     Route: 065
  9. HALDOL [Concomitant]
     Route: 065
  10. RISPERDAL [Concomitant]
     Route: 065
     Dates: start: 20050101, end: 20060101
  11. TRAZODONE HCL [Concomitant]
     Route: 065
  12. ZYPREXA [Concomitant]
     Route: 065
  13. COGENTIN [Concomitant]
     Route: 065
  14. BENADRYL [Concomitant]
     Route: 065
  15. ATIVAN [Concomitant]
     Route: 065
  16. DEPO-MEDROL [Concomitant]
     Route: 030
  17. TORADOL [Concomitant]
     Route: 030
  18. CELEBREX [Concomitant]
     Route: 065
  19. LORTAB [Concomitant]
     Route: 065
  20. LOMOTIL [Concomitant]
     Indication: GASTROENTERITIS
     Route: 048
  21. LEXAPRO [Concomitant]
     Route: 065
  22. ALBUTEROL SULFATE [Concomitant]
     Route: 055
  23. CROMOLYN SODIUM [Concomitant]
     Route: 065
  24. METAPROTERENOL SULPHATE [Concomitant]
     Route: 065
  25. CYCLOBENZAPRINE HCL [Concomitant]
     Route: 065
  26. TRAMADOL HCL [Concomitant]
     Route: 065
  27. PROMETHAZINE [Concomitant]
     Route: 065
  28. EVISTA [Concomitant]
     Route: 065
  29. METHOCARBAMOL [Concomitant]
     Route: 048
  30. CARISOPRODOL [Concomitant]
     Route: 065
  31. ZOLPIDEM TARTRATE [Concomitant]
     Route: 065

REACTIONS (27)
  - ABDOMINAL PAIN [None]
  - AGITATION [None]
  - ALOPECIA [None]
  - CHEST PAIN [None]
  - CHRONIC OBSTRUCTIVE PULMONARY DISEASE [None]
  - COUGH [None]
  - CYSTITIS [None]
  - DELUSION [None]
  - DIARRHOEA [None]
  - DIZZINESS [None]
  - DRUG ABUSE [None]
  - EYE PAIN [None]
  - FOLLICULITIS [None]
  - GINGIVAL BLEEDING [None]
  - HAEMATURIA [None]
  - HALLUCINATION [None]
  - HALLUCINATIONS, MIXED [None]
  - HEADACHE [None]
  - IRRITABILITY [None]
  - MIGRAINE [None]
  - MYALGIA [None]
  - PANCREATITIS [None]
  - SCHIZOPHRENIA, PARANOID TYPE [None]
  - TACHYCARDIA [None]
  - TACHYPHRENIA [None]
  - TOOTHACHE [None]
  - URINARY TRACT INFECTION [None]
